FAERS Safety Report 7325067-2 (Version None)
Quarter: 2011Q1

REPORT INFORMATION
  Report Type: 
  Country: None (occurrence: None)
  Receive Date: 20110302
  Receipt Date: 20110217
  Transmission Date: 20110831
  Serious: Yes (Hospitalization, Other)
  Sender: FDA-Public Use
  Company Number: US-BIOGENIDEC-2010BI042994

PATIENT
  Age: 45 Year
  Sex: Female

DRUGS (6)
  1. TYSABRI [Suspect]
     Indication: MULTIPLE SCLEROSIS
     Route: 042
     Dates: start: 20081117, end: 20100902
  2. NALTREXONE [Concomitant]
     Indication: PAIN
  3. VICODIN [Concomitant]
     Indication: PAIN IN EXTREMITY
  4. PROZAC [Concomitant]
     Indication: DEPRESSION
  5. ADDERALL 10 [Concomitant]
  6. TRAZODONE HCL [Concomitant]

REACTIONS (11)
  - PROGRESSIVE MULTIFOCAL LEUKOENCEPHALOPATHY [None]
  - IMMUNE RECONSTITUTION SYNDROME [None]
  - DYSPNOEA [None]
  - URINARY TRACT INFECTION [None]
  - GAIT DISTURBANCE [None]
  - LEUKOCYTOSIS [None]
  - SENSORY DISTURBANCE [None]
  - MULTIPLE SCLEROSIS RELAPSE [None]
  - MUSCLE SPASTICITY [None]
  - ARTHRITIS [None]
  - SYNOVIAL CYST [None]
